FAERS Safety Report 12245780 (Version 2)
Quarter: 2016Q2

REPORT INFORMATION
  Report Type: Spontaneous
  Country: US (occurrence: US)
  Receive Date: 20160407
  Receipt Date: 20160408
  Transmission Date: 20160815
  Serious: No
  Sender: FDA-Public Use
  Company Number: US-WATSON-2015-16178

PATIENT
  Sex: Male

DRUGS (4)
  1. LORAZEPAM (WATSON LABORATORIES) [Suspect]
     Active Substance: LORAZEPAM
     Indication: SEDATION
  2. LORAZEPAM (WATSON LABORATORIES) [Suspect]
     Active Substance: LORAZEPAM
     Indication: SEDATION
  3. LORAZEPAM (WATSON LABORATORIES) [Suspect]
     Active Substance: LORAZEPAM
     Indication: BEHAVIOURAL THERAPY
     Dosage: UNK UNK, UNKNOWN
     Route: 065
  4. LORAZEPAM (WATSON LABORATORIES) [Suspect]
     Active Substance: LORAZEPAM
     Indication: BEHAVIOURAL THERAPY
     Dosage: 0.5 MG, BID
     Route: 065

REACTIONS (1)
  - Abnormal behaviour [Unknown]
